FAERS Safety Report 22166909 (Version 1)
Quarter: 2023Q2

REPORT INFORMATION
  Report Type: Report from Study
  Country: US (occurrence: US)
  Receive Date: 20230403
  Receipt Date: 20230403
  Transmission Date: 20230721
  Serious: Yes (Other)
  Sender: FDA-Public Use
  Company Number: US-UCBSA-2023016168

PATIENT
  Sex: Male

DRUGS (1)
  1. VIMPAT [Suspect]
     Active Substance: LACOSAMIDE
     Indication: Seizure
     Dosage: 150 MILLIGRAM, 2T 2X/DAY (BID)

REACTIONS (9)
  - Generalised tonic-clonic seizure [Unknown]
  - Disturbance in attention [Unknown]
  - Mania [Unknown]
  - Bowel movement irregularity [Unknown]
  - Head banging [Unknown]
  - Amnesia [Unknown]
  - Drug ineffective [Unknown]
  - Feeling drunk [Unknown]
  - Feeling abnormal [Unknown]
